FAERS Safety Report 7650656-5 (Version None)
Quarter: 2011Q3

REPORT INFORMATION
  Report Type: 
  Country: None (occurrence: None)
  Receive Date: 20110802
  Receipt Date: 20110725
  Transmission Date: 20111222
  Serious: No
  Sender: FDA-Public Use
  Company Number: US-JNJFOC-20110711093

PATIENT
  Sex: Male
  Weight: 95.26 kg

DRUGS (15)
  1. DURAGESIC-100 [Suspect]
     Indication: ABDOMINAL PAIN UPPER
     Route: 062
  2. HUMULIN INSULIN [Concomitant]
     Route: 058
  3. NORVASC [Concomitant]
     Indication: BLOOD PRESSURE
     Route: 048
  4. SYNTHROID [Concomitant]
     Indication: THYROID DISORDER
     Route: 048
  5. NOVOLIN R [Concomitant]
     Indication: DIABETES MELLITUS
     Dosage: SLIDING AS NEEDED
     Route: 058
  6. LOVAZA [Concomitant]
     Indication: BLOOD CHOLESTEROL
     Route: 048
  7. ZOLOFT [Concomitant]
     Indication: DEPRESSION
     Route: 048
  8. ATIVAN [Concomitant]
     Indication: ANXIETY
     Route: 048
  9. CREON [Concomitant]
     Indication: PANCREATIC ENZYMES
     Dosage: WITH EVERY MEAL
     Route: 048
  10. PROVENTIL [Concomitant]
     Indication: MULTIPLE ALLERGIES
     Route: 055
  11. NEXIUM [Concomitant]
     Indication: GASTROOESOPHAGEAL REFLUX DISEASE
     Route: 048
  12. HUMULIN INSULIN [Concomitant]
     Indication: DIABETES MELLITUS
     Route: 058
  13. LANTUS [Concomitant]
     Indication: DIABETES MELLITUS
     Route: 058
  14. TOPROL-XL [Concomitant]
     Indication: BLOOD PRESSURE
     Route: 048
  15. PRAVASTATIN [Concomitant]
     Indication: BLOOD CHOLESTEROL
     Route: 048

REACTIONS (3)
  - WRONG TECHNIQUE IN DRUG USAGE PROCESS [None]
  - PRODUCT QUALITY ISSUE [None]
  - WITHDRAWAL SYNDROME [None]
